FAERS Safety Report 8079490-1 (Version None)
Quarter: 2012Q1

REPORT INFORMATION
  Report Type: 
  Country: None (occurrence: None)
  Receive Date: 20120128
  Receipt Date: 20110826
  Transmission Date: 20120608
  Serious: No
  Sender: FDA-Public Use
  Company Number: US-ABBOTT-11P-163-0849641-00

PATIENT
  Age: 57 Year
  Sex: Female

DRUGS (16)
  1. IRON + VITAMIN C [Concomitant]
     Indication: PRODUCT USED FOR UNKNOWN INDICATION
     Dosage: DAILY
  2. NIASPAN [Concomitant]
     Indication: BLOOD CHOLESTEROL INCREASED
  3. PREMARIN [Concomitant]
     Indication: PRODUCT USED FOR UNKNOWN INDICATION
     Dosage: DAILY
  4. CITRICAL [Concomitant]
     Indication: PRODUCT USED FOR UNKNOWN INDICATION
     Dosage: DAILY
  5. METHADONE HCL [Concomitant]
     Indication: FIBROMYALGIA
  6. MULTI-VITAMIN [Concomitant]
     Indication: PRODUCT USED FOR UNKNOWN INDICATION
     Dosage: DAILY
  7. LYRICA [Concomitant]
     Indication: TRIGEMINAL NEURALGIA
  8. ACETAMINOPHEN [Concomitant]
     Indication: PRODUCT USED FOR UNKNOWN INDICATION
  9. ASPIRIN [Concomitant]
     Indication: PRODUCT USED FOR UNKNOWN INDICATION
     Dosage: 325 MILLIGRAMS, DAILY
  10. PREDNISONE TAB [Concomitant]
     Indication: PRODUCT USED FOR UNKNOWN INDICATION
     Dosage: 10 MILLIGRAMS, DAILY
  11. FISH OIL [Concomitant]
     Indication: PRODUCT USED FOR UNKNOWN INDICATION
     Dosage: 2000 MILLIGRAMS, DAILY
  12. SAM-E [Concomitant]
     Indication: FIBROMYALGIA
     Dosage: 600 MILLIGRAMS, DAILY
  13. HUMIRA [Suspect]
     Indication: RHEUMATOID ARTHRITIS
     Dates: start: 20110718
  14. ULTRAM [Concomitant]
     Indication: FIBROMYALGIA
  15. MELATONIN [Concomitant]
     Indication: INSOMNIA
     Dosage: AT BEDTIME
  16. VIT E [Concomitant]
     Indication: PRODUCT USED FOR UNKNOWN INDICATION
     Dosage: 4000 MILLIGRAMS, DAILY

REACTIONS (1)
  - INJECTION SITE PAIN [None]
